FAERS Safety Report 6920882-9 (Version None)
Quarter: 2010Q3

REPORT INFORMATION
  Report Type: 
  Country: None (occurrence: None)
  Receive Date: 20100804
  Receipt Date: 20090619
  Transmission Date: 20110219
  Serious: No
  Sender: FDA-Public Use
  Company Number: 2009-1257

PATIENT
  Age: 61 Year
  Sex: Female
  Weight: 76.2 kg

DRUGS (12)
  1. SOMATULINE DEPOT [Suspect]
     Indication: ADENOCARCINOMA
     Dosage: 9120 MG, 1 IN 28 D), SUBCUTANEOUS; (90 MG, 1 IN 28 D), SUBCUTANEOUS
     Route: 058
     Dates: start: 20090202, end: 20090301
  2. SOMATULINE DEPOT [Suspect]
     Indication: ADENOCARCINOMA
     Dosage: 9120 MG, 1 IN 28 D), SUBCUTANEOUS; (90 MG, 1 IN 28 D), SUBCUTANEOUS
     Route: 058
     Dates: start: 20090427, end: 20090525
  3. OMEGA 369 (CARBINOXAMINE MALEATE) [Concomitant]
  4. POTASSIUM ER (POTASSIUM) [Concomitant]
  5. CALCIUM/MAGNESIUM (CALCIUM MAGNESIUM ZINC) [Concomitant]
  6. PREVIACOD (LANSOPRAZOLE) [Concomitant]
  7. HYDROCHLOROTHIAZIDE [Concomitant]
  8. ALTACE [Concomitant]
  9. CYMBALTA [Concomitant]
  10. FITAMIL (ALL OTHER THERAPEUTIC PRODUCTS) [Concomitant]
  11. LORATADINE [Concomitant]
  12. VENTOLIN INHALAER (SALBUTAMOL) [Concomitant]

REACTIONS (8)
  - COUGH [None]
  - DIARRHOEA [None]
  - DIZZINESS [None]
  - DRUG INEFFECTIVE [None]
  - HEART RATE INCREASED [None]
  - NAUSEA [None]
  - PALPITATIONS [None]
  - SYNCOPE [None]
